FAERS Safety Report 9349553 (Version 2)
Quarter: 2013Q2

REPORT INFORMATION
  Report Type: Spontaneous
  Country: FR (occurrence: FR)
  Receive Date: 20130614
  Receipt Date: 20130628
  Transmission Date: 20140414
  Serious: Yes (Hospitalization)
  Sender: FDA-Public Use
  Company Number: FR-GLAXOSMITHKLINE-B0897708A

PATIENT
  Age: 67 Year
  Sex: Female

DRUGS (10)
  1. ZOPHREN [Suspect]
     Indication: PREMEDICATION
     Dosage: 8MG PER DAY
     Route: 048
     Dates: start: 20130430, end: 20130501
  2. OXALIPLATINE [Suspect]
     Indication: GASTRIC CANCER
     Dosage: 175MG CYCLIC
     Route: 042
     Dates: start: 20130430, end: 20130430
  3. EPIRUBICINE [Concomitant]
     Indication: GASTRIC CANCER
     Dosage: 67MG CYCLIC
     Route: 042
     Dates: start: 20130430, end: 20130430
  4. CRESTOR [Concomitant]
     Dosage: 5MG PER DAY
     Route: 048
  5. PLAVIX [Concomitant]
     Dosage: 75MG PER DAY
     Route: 048
  6. DOLIPRANE [Concomitant]
     Dosage: 1G AS REQUIRED
     Route: 048
  7. ZOLPIDEM [Concomitant]
     Dosage: 1UNIT PER DAY
     Route: 048
  8. METHYLPREDNISOLONE [Concomitant]
     Indication: PREMEDICATION
     Dosage: 40MG SINGLE DOSE
     Route: 042
     Dates: start: 20130430, end: 20130430
  9. EZETROL [Concomitant]
     Dosage: 10MG PER DAY
     Route: 048
  10. EMEND [Concomitant]
     Indication: PREMEDICATION
     Route: 048
     Dates: start: 20130430, end: 20130502

REACTIONS (14)
  - Dyskinesia [Recovered/Resolved]
  - Chest discomfort [Recovered/Resolved]
  - Dysphagia [Recovered/Resolved]
  - Pain in extremity [Recovered/Resolved]
  - Myalgia [Recovered/Resolved]
  - Gait disturbance [Recovered/Resolved]
  - Muscle rigidity [Recovered/Resolved]
  - Motor dysfunction [Recovered/Resolved]
  - Muscle spasms [Recovered/Resolved]
  - Muscle contractions involuntary [Recovered/Resolved]
  - Hypotonia [Recovered/Resolved]
  - Tremor [Recovered/Resolved]
  - Paraesthesia [Recovered/Resolved]
  - Tetany [Recovered/Resolved]
